FAERS Safety Report 10701060 (Version 1)
Quarter: 2014Q4

REPORT INFORMATION
  Report Type: Spontaneous
  Country: US (occurrence: None)
  Receive Date: 20141224
  Receipt Date: 20141224
  Transmission Date: 20150529
  Serious: Yes (Hospitalization)
  Sender: FDA-Public Use
  Company Number: 2014AP004064

PATIENT
  Sex: Female

DRUGS (1)
  1. METFORMIN HYDROCHLORIDE (METFORMIN) TABLET [Suspect]
     Active Substance: METFORMIN HYDROCHLORIDE
     Indication: PRODUCT USED FOR UNKNOWN INDICATION

REACTIONS (3)
  - Vomiting [None]
  - Malaise [None]
  - Diarrhoea [None]
